FAERS Safety Report 22888422 (Version 3)
Quarter: 2024Q1

REPORT INFORMATION
  Report Type: Other
  Country: US (occurrence: None)
  Receive Date: 20230831
  Receipt Date: 20240212
  Transmission Date: 20240410
  Serious: No
  Sender: FDA-Public Use
  Company Number: US-ROCHE-3411904

PATIENT
  Age: 2 Year
  Sex: Female
  Weight: 12.9 kg

DRUGS (1)
  1. EVRYSDI [Suspect]
     Active Substance: RISDIPLAM
     Indication: Spinal muscular atrophy
     Dosage: 0.75 MG/ML80 ML (IN 100 ML BOTTLE)

REACTIONS (2)
  - Off label use [Unknown]
  - No adverse event [Unknown]
